FAERS Safety Report 5868581-9 (Version None)
Quarter: 2008Q3

REPORT INFORMATION
  Report Type: 
  Country: None (occurrence: None)
  Receive Date: 20080828
  Receipt Date: 20080814
  Transmission Date: 20090109
  Serious: Yes (Death)
  Sender: FDA-Public Use
  Company Number: 2008AL009540

PATIENT
  Age: 81 Year
  Sex: Female

DRUGS (2)
  1. DIGOXIN [Suspect]
     Indication: CARDIAC FAILURE CONGESTIVE
     Dosage: 0.25MG, DAILY, PO
     Route: 048
     Dates: start: 20060503, end: 20060510
  2. COUMADIN [Suspect]
     Indication: DRUG USE FOR UNKNOWN INDICATION
     Dosage: 5MG
     Dates: start: 20060425

REACTIONS (10)
  - ATRIAL FIBRILLATION [None]
  - CEREBRAL HAEMORRHAGE [None]
  - DRUG TOXICITY [None]
  - DYSPNOEA [None]
  - HEART RATE IRREGULAR [None]
  - MALAISE [None]
  - OEDEMA PERIPHERAL [None]
  - RENAL FAILURE [None]
  - SEPTIC SHOCK [None]
  - SOMNOLENCE [None]
